FAERS Safety Report 22016384 (Version 1)
Quarter: 2023Q1

REPORT INFORMATION
  Report Type: Spontaneous
  Country: US (occurrence: US)
  Receive Date: 20230221
  Receipt Date: 20230221
  Transmission Date: 20230418
  Serious: Yes (Hospitalization)
  Sender: FDA-Public Use
  Company Number: US-MYLANLABS-2023M1017775

PATIENT
  Age: 67 Year
  Sex: Female

DRUGS (3)
  1. FLUOROURACIL [Suspect]
     Active Substance: FLUOROURACIL
     Indication: Conjunctival melanoma
     Dosage: UNK
     Route: 061
  2. INTERFERON [Suspect]
     Active Substance: INTERFERON
     Indication: Conjunctival melanoma
     Dosage: UNK
     Route: 061
  3. MITOMYCIN [Suspect]
     Active Substance: MITOMYCIN
     Indication: Conjunctival melanoma
     Dosage: UNK
     Route: 061

REACTIONS (1)
  - Scleromalacia [Unknown]
